FAERS Safety Report 7341348-0 (Version None)
Quarter: 2011Q1

REPORT INFORMATION
  Report Type: 
  Country: None (occurrence: None)
  Receive Date: 20110309
  Receipt Date: 20110228
  Transmission Date: 20110831
  Serious: Yes (Hospitalization)
  Sender: FDA-Public Use
  Company Number: US-WATSON-2011-02438

PATIENT
  Sex: Female
  Weight: 50 kg

DRUGS (1)
  1. FENTANYL-75 [Suspect]
     Indication: PAIN
     Dosage: ONE PATCH APPLIED
     Route: 062
     Dates: start: 20110222, end: 20110222

REACTIONS (4)
  - ACCIDENTAL OVERDOSE [None]
  - DRUG PRESCRIBING ERROR [None]
  - RESPIRATORY ARREST [None]
  - LOSS OF CONSCIOUSNESS [None]
